FAERS Safety Report 24061466 (Version 1)
Quarter: 2024Q3

REPORT INFORMATION
  Report Type: Spontaneous
  Country: NO (occurrence: NO)
  Receive Date: 20240708
  Receipt Date: 20240708
  Transmission Date: 20241016
  Serious: Yes (Life-Threatening, Hospitalization)
  Sender: MYLAN
  Company Number: None

PATIENT
  Age: 73 Year
  Sex: Male

DRUGS (2)
  1. CLOZAPINE [Suspect]
     Active Substance: CLOZAPINE
     Indication: Schizophrenia
     Dosage: UNK 50 + 150 MG
     Route: 048
     Dates: start: 20240415, end: 20240614
  2. LEVOMEPROMAZINE [Concomitant]
     Active Substance: LEVOMEPROMAZINE
     Indication: Sleep disorder
     Dosage: 50 MILLIGRAM, QD, VESPERS
     Route: 065
     Dates: start: 20000417, end: 20240614

REACTIONS (8)
  - Balance disorder [Unknown]
  - Tachypnoea [Unknown]
  - Cold sweat [Unknown]
  - Dizziness [Unknown]
  - Confusional state [Unknown]
  - Leukopenia [Unknown]
  - Pyrexia [Unknown]
  - Headache [Unknown]

NARRATIVE: CASE EVENT DATE: 20240610
